FAERS Safety Report 6558448-5 (Version None)
Quarter: 2010Q1

REPORT INFORMATION
  Report Type: 
  Country: None (occurrence: None)
  Receive Date: 20100129
  Receipt Date: 20100115
  Transmission Date: 20100710
  Serious: Yes (Death)
  Sender: FDA-Public Use
  Company Number: US-JNJCH-2010001736

PATIENT
  Age: 56 Year
  Sex: Male

DRUGS (1)
  1. ASPIRIN [Suspect]
     Indication: SUICIDE ATTEMPT
     Dosage: TEXT:9 GRAMS
     Route: 048

REACTIONS (2)
  - CARDIAC ARREST [None]
  - THERAPEUTIC AGENT TOXICITY [None]
